FAERS Safety Report 20809534 (Version 1)
Quarter: 2022Q2

REPORT INFORMATION
  Report Type: Spontaneous
  Country: US (occurrence: US)
  Receive Date: 20220510
  Receipt Date: 20220510
  Transmission Date: 20220721
  Serious: No
  Sender: FDA-Public Use
  Company Number: US-SIEMENS HEALTHCARE LIMITED-PET-000079-2021

PATIENT
  Age: 72 Year
  Sex: Female

DRUGS (1)
  1. FLUDEOXYGLUCOSE F-18 [Suspect]
     Active Substance: FLUDEOXYGLUCOSE F-18
     Indication: Product used for unknown indication
     Dosage: 11.89 MILLICURIE, SINGLE
     Route: 065
     Dates: start: 20211222

REACTIONS (2)
  - Erythema [Unknown]
  - Hypersensitivity [Unknown]
